FAERS Safety Report 20392613 (Version 1)
Quarter: 2022Q1

REPORT INFORMATION
  Report Type: Other
  Country: DE (occurrence: DE)
  Receive Date: 20220128
  Receipt Date: 20220128
  Transmission Date: 20220424
  Serious: No
  Sender: FDA-Public Use
  Company Number: None

PATIENT
  Age: 73 Year
  Sex: Male
  Weight: 71 kg

DRUGS (1)
  1. LEVETIRACETAM [Suspect]
     Active Substance: LEVETIRACETAM
     Indication: Epilepsy
     Dosage: 750 MILLIGRAM, BID
     Route: 048
     Dates: start: 20210101

REACTIONS (3)
  - Pain [Recovered/Resolved with Sequelae]
  - Toothache [Recovered/Resolved with Sequelae]
  - Pain in jaw [Recovered/Resolved with Sequelae]

NARRATIVE: CASE EVENT DATE: 20220116
